FAERS Safety Report 8813896 (Version 2)
Quarter: 2012Q4

REPORT INFORMATION
  Report Type: 
  Country: FR (occurrence: FR)
  Receive Date: 20120928
  Receipt Date: 20121015
  Transmission Date: 20130627
  Serious: Yes (Other)
  Sender: FDA-Public Use
  Company Number: FR-AMGEN-FRASP2012059601

PATIENT
  Age: 77 Year
  Sex: Male
  Weight: 61 kg

DRUGS (12)
  1. MIMPARA [Suspect]
     Indication: HYPERPARATHYROIDISM SECONDARY
     Dosage: 30 UNK, qd
     Route: 048
     Dates: start: 2011, end: 20120913
  2. PREVISCAN                          /00789001/ [Concomitant]
     Dosage: 1/4 alternated by 1/5
  3. TEMESTA                            /00273201/ [Concomitant]
  4. LEVOTHYROX [Concomitant]
  5. FOSRENOL [Concomitant]
  6. MOTILIUM                           /00498201/ [Concomitant]
  7. INEXIUM /01479302/ [Concomitant]
  8. LEXOMIL [Concomitant]
  9. SEROPLEX [Concomitant]
  10. CALCIDIA [Concomitant]
  11. CORDARONE X [Concomitant]
  12. KAYEXALATE [Concomitant]

REACTIONS (2)
  - International normalised ratio increased [Recovered/Resolved]
  - Overdose [Recovered/Resolved]
